FAERS Safety Report 7018042-9 (Version None)
Quarter: 2010Q3

REPORT INFORMATION
  Report Type: 
  Country: None (occurrence: None)
  Receive Date: 20100928
  Receipt Date: 20100920
  Transmission Date: 20110219
  Serious: Yes (Other)
  Sender: FDA-Public Use
  Company Number: PHHY2010US62634

PATIENT
  Sex: Male

DRUGS (4)
  1. CLOZARIL [Suspect]
  2. ACETYLCYSTEINE [Suspect]
  3. LITHIUM [Suspect]
  4. DEPAKOTE [Concomitant]

REACTIONS (4)
  - CONVULSION [None]
  - DRUG LEVEL FLUCTUATING [None]
  - DYSARTHRIA [None]
  - FATIGUE [None]
